FAERS Safety Report 25869945 (Version 4)
Quarter: 2025Q4

REPORT INFORMATION
  Report Type: Report from Study
  Country: US (occurrence: US)
  Receive Date: 20251001
  Receipt Date: 20251018
  Transmission Date: 20260118
  Serious: No
  Sender: ABBVIE
  Company Number: US-ABBVIE-6482685

PATIENT
  Age: 63 Year
  Sex: Female
  Weight: 40.823 kg

DRUGS (1)
  1. HUMIRA [Suspect]
     Active Substance: ADALIMUMAB
     Indication: Colitis ulcerative
     Dosage: DOSE FORM: SOLUTION FOR INJECTION IN PRE-FILLED PEN?FORM STRENGTH: 40 MILLIGRAM
     Route: 058
     Dates: start: 202506

REACTIONS (2)
  - Haematochezia [Not Recovered/Not Resolved]
  - Sinusitis [Recovering/Resolving]

NARRATIVE: CASE EVENT DATE: 20250901
